FAERS Safety Report 20416794 (Version 2)
Quarter: 2022Q1

REPORT INFORMATION
  Report Type: Other
  Country: TW (occurrence: None)
  Receive Date: 20220202
  Receipt Date: 20220212
  Transmission Date: 20220424
  Serious: Yes (Hospitalization)
  Sender: FDA-Public Use
  Company Number: TW-ROCHE-3009263

PATIENT
  Age: 56 Year
  Sex: Female

DRUGS (1)
  1. AVASTIN [Suspect]
     Active Substance: BEVACIZUMAB
     Indication: Colorectal cancer metastatic
     Route: 065

REACTIONS (4)
  - Pyrexia [Not Recovered/Not Resolved]
  - Infection [Unknown]
  - Inflammation [Not Recovered/Not Resolved]
  - Pyrexia [Unknown]

NARRATIVE: CASE EVENT DATE: 20210701
